FAERS Safety Report 8295288-3 (Version None)
Quarter: 2012Q2

REPORT INFORMATION
  Report Type: 
  Country: None (occurrence: None)
  Receive Date: 20120418
  Receipt Date: 20120411
  Transmission Date: 20120825
  Serious: Yes (Congenital Anomaly)
  Sender: FDA-Public Use
  Company Number: US-UCBSA-030679

PATIENT
  Age: 12 Month
  Sex: Female

DRUGS (10)
  1. VITAMIN AND MINERAL PRENATAL SUPPLEMENT W/ FOLIC ACID CAP [Concomitant]
     Dosage: 1 TABLET DAILY
     Route: 064
     Dates: end: 20110223
  2. LAMICTAL [Concomitant]
     Route: 064
     Dates: end: 20110223
  3. LAMICTAL [Concomitant]
     Route: 064
     Dates: end: 20090401
  4. PNEUMOCOCCAL CONJUGATE VACCINE [Concomitant]
     Dates: start: 20110223
  5. FOLIC ACID [Concomitant]
     Route: 064
     Dates: end: 20110223
  6. PNEUMOCOCCAL CONJUGATE VACCINE [Concomitant]
     Dates: start: 20100427, end: 20100427
  7. VARICELLA-ZOSTER IMMUNE GLOBULIN (HUMAN) [Concomitant]
     Dates: start: 20110223
  8. KEPPRA [Suspect]
     Route: 064
     Dates: end: 20110223
  9. PNEUMOCOCCAL CONJUGATE VACCINE [Concomitant]
     Dates: start: 20100623, end: 20100623
  10. PNEUMOCOCCAL CONJUGATE VACCINE [Concomitant]
     Dates: start: 20100823, end: 20100823

REACTIONS (3)
  - EYELID PTOSIS CONGENITAL [None]
  - FOETAL EXPOSURE DURING PREGNANCY [None]
  - FOOT DEFORMITY [None]
